FAERS Safety Report 22057832 (Version 1)
Quarter: 2023Q1

REPORT INFORMATION
  Report Type: Report from Study
  Country: US (occurrence: US)
  Receive Date: 20230303
  Receipt Date: 20230303
  Transmission Date: 20230418
  Serious: No
  Sender: FDA-Public Use
  Company Number: US-ORG100014127-2022001040

PATIENT
  Age: 42 Year
  Sex: Male

DRUGS (5)
  1. METOPIRONE [Suspect]
     Active Substance: METYRAPONE
     Indication: Cushing^s syndrome
     Dosage: 250 MG : TOOK 1 CAPSULE BY MOUTH TWICE DAILY
     Route: 048
     Dates: start: 20220323
  2. ADVAIR DISCU AER 250/50 [Concomitant]
     Indication: Product used for unknown indication
  3. ondansetron tab 4 mg [Concomitant]
     Indication: Product used for unknown indication
  4. Prochlorperazine tab 10 mg [Concomitant]
     Indication: Product used for unknown indication
  5. Spironolactone tab 50 mg [Concomitant]
     Indication: Product used for unknown indication

REACTIONS (1)
  - Off label use [Not Recovered/Not Resolved]

NARRATIVE: CASE EVENT DATE: 20220323
